FAERS Safety Report 13023261 (Version 1)
Quarter: 2016Q4

REPORT INFORMATION
  Report Type: Spontaneous
  Country: US (occurrence: US)
  Receive Date: 20161213
  Receipt Date: 20161213
  Transmission Date: 20170207
  Serious: Yes (Other)
  Sender: FDA-Public Use
  Company Number: US-SEBELA IRELAND LIMITED-2016SEB01529

PATIENT
  Age: 53 Year
  Sex: Male

DRUGS (4)
  1. 5-ASA [Concomitant]
     Active Substance: MESALAMINE
     Indication: CROHN^S DISEASE
     Dosage: 4.8 G, 1X/DAY
     Route: 065
  2. AZATHIOPRINE. [Suspect]
     Active Substance: AZATHIOPRINE
     Indication: CROHN^S DISEASE
     Dosage: 150 MG, 1X/DAY
     Route: 065
     Dates: start: 199409, end: 1996
  3. AZATHIOPRINE. [Suspect]
     Active Substance: AZATHIOPRINE
     Dosage: UNK
     Route: 065
     Dates: start: 2000
  4. STEROIDS [Concomitant]
     Active Substance: UNSPECIFIED INGREDIENT
     Indication: CROHN^S DISEASE
     Route: 065

REACTIONS (3)
  - Portal hypertension [Not Recovered/Not Resolved]
  - Varices oesophageal [Unknown]
  - Nodular regenerative hyperplasia [Unknown]
